FAERS Safety Report 9804642 (Version 3)
Quarter: 2015Q1

REPORT INFORMATION
  Report Type: Spontaneous
  Country: US (occurrence: US)
  Receive Date: 20140108
  Receipt Date: 20150126
  Transmission Date: 20150721
  Serious: Yes (Hospitalization, Other)
  Sender: FDA-Public Use
  Company Number: US-009507513-1401USA002611

PATIENT
  Sex: Female
  Weight: 132.88 kg

DRUGS (1)
  1. NUVARING [Suspect]
     Active Substance: ETHINYL ESTRADIOL\ETONOGESTREL
     Indication: PRODUCT USED FOR UNKNOWN INDICATION
     Dosage: UNK
     Route: 067
     Dates: start: 20120703, end: 20120819

REACTIONS (11)
  - Pulmonary embolism [Unknown]
  - Von Willebrand^s disease [Not Recovered/Not Resolved]
  - Dysfunctional uterine bleeding [Not Recovered/Not Resolved]
  - Asthma [Unknown]
  - Panic attack [Unknown]
  - Suicidal ideation [Unknown]
  - Suicide attempt [Unknown]
  - Bipolar disorder [Unknown]
  - Depression [Unknown]
  - Epistaxis [Unknown]
  - Anxiety [Unknown]

NARRATIVE: CASE EVENT DATE: 20120820
